FAERS Safety Report 14447872 (Version 1)
Quarter: 2018Q1

REPORT INFORMATION
  Report Type: Report from Study
  Country: DE (occurrence: DE)
  Receive Date: 20180126
  Receipt Date: 20180126
  Transmission Date: 20180509
  Serious: Yes (Hospitalization, Other)
  Sender: FDA-Public Use
  Company Number: DE-INCYTE CORPORATION-2017IN011123

PATIENT

DRUGS (6)
  1. JAKAVI [Suspect]
     Active Substance: RUXOLITINIB
     Indication: MYELOFIBROSIS
     Dosage: 15 MG, QD (10-0-5)
     Route: 065
     Dates: start: 20121031
  2. DIOVAN [Concomitant]
     Active Substance: VALSARTAN
     Indication: HYPERTENSION
     Dosage: 160 MG, QD
     Route: 048
     Dates: start: 20040106, end: 20171119
  3. ALLOPURINOL. [Concomitant]
     Active Substance: ALLOPURINOL
     Indication: HYPERURICAEMIA
     Dosage: 300 MG, QD
     Route: 048
     Dates: start: 20040106
  4. ASPIRIN. [Concomitant]
     Active Substance: ASPIRIN
     Indication: CEREBROVASCULAR ACCIDENT
     Dosage: 50 MG, QD
     Route: 048
     Dates: start: 20040106
  5. CIPROFLOXACIN. [Concomitant]
     Active Substance: CIPROFLOXACIN
     Indication: PRODUCT USED FOR UNKNOWN INDICATION
     Route: 065
  6. METOPROLOL. [Concomitant]
     Active Substance: METOPROLOL
     Indication: HYPERTENSION
     Dosage: 47.5 MG, QD
     Route: 048
     Dates: start: 20040106

REACTIONS (20)
  - Polyneuropathy [Recovering/Resolving]
  - Second primary malignancy [Recovering/Resolving]
  - Muscle spasms [Unknown]
  - Dysaesthesia [Unknown]
  - Thermoanaesthesia [Unknown]
  - White blood cells urine positive [Unknown]
  - Metastases to bone [Unknown]
  - Osteosclerosis [Unknown]
  - Bone lesion [Unknown]
  - Osteolysis [Unknown]
  - Muscle atrophy [Unknown]
  - Collagen disorder [Unknown]
  - Hypoaesthesia [Unknown]
  - Ataxia [Unknown]
  - Urinary sediment present [Unknown]
  - Plasma cell myeloma [Recovering/Resolving]
  - Anamnestic reaction [Unknown]
  - Paraesthesia [Unknown]
  - Red blood cells urine positive [Unknown]
  - Balance disorder [Unknown]

NARRATIVE: CASE EVENT DATE: 20171120
